FAERS Safety Report 14903802 (Version 2)
Quarter: 2018Q2

REPORT INFORMATION
  Report Type: Spontaneous
  Country: US (occurrence: US)
  Receive Date: 20180516
  Receipt Date: 20180517
  Transmission Date: 20180711
  Serious: Yes (Other)
  Sender: FDA-Public Use
  Company Number: US-009507513-1805USA005846

PATIENT
  Age: 74 Year
  Sex: Male

DRUGS (2)
  1. JANUVIA [Suspect]
     Active Substance: SITAGLIPTIN PHOSPHATE
     Indication: DIABETES MELLITUS
     Dosage: 100 MG, ONCE DAILY
     Route: 048
     Dates: start: 20180503, end: 20180512
  2. LYRICA [Concomitant]
     Active Substance: PREGABALIN

REACTIONS (4)
  - Pancreatitis [Not Recovered/Not Resolved]
  - Agitation [Not Recovered/Not Resolved]
  - Mood altered [Not Recovered/Not Resolved]
  - Confusional state [Not Recovered/Not Resolved]

NARRATIVE: CASE EVENT DATE: 20180512
